FAERS Safety Report 19361771 (Version 1)
Quarter: 2021Q2

REPORT INFORMATION
  Report Type: Report from Study
  Country: CA (occurrence: CA)
  Receive Date: 20210601
  Receipt Date: 20210601
  Transmission Date: 20210717
  Serious: Yes (Hospitalization)
  Sender: FDA-Public Use
  Company Number: CA-JNJFOC-20210553689

PATIENT
  Age: 16 Year
  Sex: Male
  Weight: 69.01 kg

DRUGS (1)
  1. REMICADE [Suspect]
     Active Substance: INFLIXIMAB
     Indication: COLITIS ULCERATIVE
     Dosage: ON 26?MAY?2021, THE PATIENT RECEIVED 6TH INFLIXIMAB INFUSION FOR DOSE OF 600 MG
     Route: 042
     Dates: start: 20210209

REACTIONS (4)
  - Product use issue [Unknown]
  - Colitis ulcerative [Recovered/Resolved]
  - Off label use [Unknown]
  - Faeces discoloured [Recovered/Resolved]

NARRATIVE: CASE EVENT DATE: 202102
